FAERS Safety Report 8439519-5 (Version None)
Quarter: 2012Q2

REPORT INFORMATION
  Report Type: 
  Country: None (occurrence: None)
  Receive Date: 20120615
  Receipt Date: 20120612
  Transmission Date: 20120825
  Serious: Yes (Death, Other)
  Sender: FDA-Public Use
  Company Number: US-PFIZER INC-2012070841

PATIENT
  Sex: Female
  Weight: 64.399 kg

DRUGS (3)
  1. OXYCODONE HCL [Suspect]
     Dosage: UNK
     Route: 048
  2. HYDROCODONE BITARTRATE [Suspect]
     Dosage: UNK
     Route: 048
  3. ALPRAZOLAM [Suspect]
     Dosage: UNK
     Route: 048

REACTIONS (4)
  - THYROIDITIS CHRONIC [None]
  - TOXICITY TO VARIOUS AGENTS [None]
  - BRONCHOPNEUMONIA [None]
  - ACCIDENTAL POISONING [None]
